FAERS Safety Report 5965349-X (Version None)
Quarter: 2008Q4

REPORT INFORMATION
  Report Type: 
  Country: None (occurrence: None)
  Receive Date: 20081125
  Receipt Date: 20081118
  Transmission Date: 20090506
  Serious: Yes (Other)
  Sender: FDA-Public Use
  Company Number: GB-ASTRAZENECA-2008GB01966

PATIENT
  Sex: Female

DRUGS (11)
  1. SYMBICORT [Suspect]
     Indication: CHRONIC OBSTRUCTIVE PULMONARY DISEASE
     Dosage: 400/12 STRENGTH TURBOHALER
     Route: 055
     Dates: start: 20080521, end: 20080701
  2. LOSARTAN POTASSIUM [Concomitant]
     Route: 048
  3. MELOXICAM [Concomitant]
     Route: 048
  4. NACORANDIL [Concomitant]
  5. AMLODIPINE [Concomitant]
  6. ATORVASTATIN CALCIUM [Concomitant]
  7. BENDROFLUMETHIAZIDE [Concomitant]
  8. CLOPIDOGREL [Concomitant]
  9. ACETAMINOPHEN W/ CODEINE [Concomitant]
     Dosage: 30/500
  10. FLUOXETINE [Concomitant]
  11. IMDUR [Concomitant]

REACTIONS (3)
  - CANDIDIASIS [None]
  - MOUTH ULCERATION [None]
  - TONGUE ABSCESS [None]
